FAERS Safety Report 22320860 (Version 1)
Quarter: 2023Q2

REPORT INFORMATION
  Report Type: Spontaneous
  Country: US (occurrence: None)
  Receive Date: 20230512
  Receipt Date: 20230512
  Transmission Date: 20230722
  Serious: Yes (Hospitalization)
  Sender: FDA-Public Use
  Company Number: None

PATIENT
  Sex: Female

DRUGS (1)
  1. TACROLIMUS [Suspect]
     Active Substance: TACROLIMUS
     Indication: Renal transplant
     Dosage: OTHER QUANTITY : 1 CAP AM + 2C PM;?FREQUENCY : TWICE A DAY;?
     Route: 048
     Dates: start: 202209

REACTIONS (2)
  - Incisional hernia [None]
  - Post procedural complication [None]
